FAERS Safety Report 20472130 (Version 2)
Quarter: 2022Q2

REPORT INFORMATION
  Report Type: Report from Study
  Country: DO (occurrence: DO)
  Receive Date: 20220214
  Receipt Date: 20220414
  Transmission Date: 20220721
  Serious: Yes (Other)
  Sender: FDA-Public Use
  Company Number: DO-ABBVIE-22K-279-4277407-00

PATIENT
  Age: 70 Year
  Sex: Female
  Weight: 65.7 kg

DRUGS (2)
  1. HUMIRA [Suspect]
     Active Substance: ADALIMUMAB
     Indication: Uveitis
     Route: 058
     Dates: start: 20190814, end: 20211112
  2. HUMIRA [Suspect]
     Active Substance: ADALIMUMAB
     Route: 058
     Dates: end: 20220325

REACTIONS (7)
  - Hypoacusis [Recovering/Resolving]
  - Tinnitus [Recovering/Resolving]
  - Laboratory test abnormal [Recovering/Resolving]
  - COVID-19 [Recovered/Resolved]
  - Laboratory test abnormal [Recovering/Resolving]
  - Muscular weakness [Not Recovered/Not Resolved]
  - Gait disturbance [Not Recovered/Not Resolved]

NARRATIVE: CASE EVENT DATE: 20220101
